FAERS Safety Report 8950935 (Version 1)
Quarter: 2012Q4

REPORT INFORMATION
  Report Type: 
  Country: DE (occurrence: DE)
  Receive Date: 20121207
  Receipt Date: 20121207
  Transmission Date: 20130627
  Serious: Yes (Death)
  Sender: FDA-Public Use
  Company Number: DE-MPIJNJ-2012-08603

PATIENT

DRUGS (3)
  1. VELCADE [Suspect]
     Indication: MULTIPLE MYELOMA
     Dosage: 1.3 mg/m2, Cyclic
     Route: 040
  2. BENDAMUSTINE [Suspect]
     Indication: MULTIPLE MYELOMA
     Dosage: 60 mg/m2, Cyclic
     Route: 042
  3. PREDNISONE [Suspect]
     Indication: MULTIPLE MYELOMA
     Dosage: 100 mg, Cyclic
     Route: 048

REACTIONS (1)
  - Neutropenic infection [Fatal]
